FAERS Safety Report 7977838-7 (Version None)
Quarter: 2011Q4

REPORT INFORMATION
  Report Type: 
  Country: None (occurrence: None)
  Receive Date: 20111214
  Receipt Date: 20111202
  Transmission Date: 20120403
  Serious: No
  Sender: FDA-Public Use
  Company Number: US-AMGEN-USASP2011028835

PATIENT
  Age: 63 Year
  Sex: Female

DRUGS (32)
  1. LIPITOR [Concomitant]
     Dosage: UNK
  2. VIVELLE [Concomitant]
     Dosage: UNK
  3. PREDNISONE TAB [Concomitant]
  4. HYDROCHLOROTHIAZIDE [Concomitant]
     Dosage: UNK
  5. ESTROPIPATE [Concomitant]
     Dosage: UNK
  6. PROLIA [Suspect]
     Indication: OSTEOPOROSIS POSTMENOPAUSAL
     Dosage: 60 MG, Q6MO
     Dates: start: 20110512
  7. LIPITOR [Concomitant]
  8. CELEBREX [Concomitant]
  9. PLAVIX [Concomitant]
     Dosage: UNK
  10. SPIRIVA [Concomitant]
     Dosage: UNK
  11. VITAMIN E                          /00110501/ [Concomitant]
  12. TRAZODONE HCL [Concomitant]
     Dosage: 2 MG, UNK
  13. PROAIR HFA [Concomitant]
  14. CALCIUM [Concomitant]
  15. FOLIC ACID [Concomitant]
  16. VITAMIN D [Concomitant]
  17. ENBREL [Suspect]
     Indication: RHEUMATOID ARTHRITIS
     Dosage: 25 MG, 2 TIMES/WK
     Dates: start: 20020101
  18. FOLIC ACID [Concomitant]
     Dosage: UNK
  19. PREDNISONE TAB [Concomitant]
     Dosage: UNK
  20. PLAVIX [Concomitant]
     Dosage: UNK
  21. TRAZODONE HCL [Concomitant]
     Dosage: 2 MG, QD
  22. CELEBREX [Concomitant]
     Dosage: UNK
  23. ACYCLOVIR [Concomitant]
     Dosage: UNK
  24. ASPIRIN [Concomitant]
     Dosage: UNK
  25. METHOTREXATE [Concomitant]
  26. HYDROCHLOROTHIAZIDE [Concomitant]
  27. ASPIRIN [Concomitant]
  28. SPIRIVA [Concomitant]
  29. METHOTREXATE [Concomitant]
     Dosage: UNK MG, UNK
  30. DURAGESIC-100 [Concomitant]
     Dosage: UNK
  31. FLOVENT [Concomitant]
     Dosage: UNK
  32. ALBUTEROL [Concomitant]

REACTIONS (11)
  - FEELING HOT [None]
  - MYALGIA [None]
  - RASH [None]
  - ARTHRALGIA [None]
  - ERYTHEMA [None]
  - STOMATITIS [None]
  - BONE PAIN [None]
  - PAIN IN EXTREMITY [None]
  - BLISTER [None]
  - GAIT DISTURBANCE [None]
  - DERMATITIS [None]
